FAERS Safety Report 14026576 (Version 3)
Quarter: 2017Q4

REPORT INFORMATION
  Report Type: Report from Study
  Country: None (occurrence: FR)
  Receive Date: 20170929
  Receipt Date: 20171222
  Transmission Date: 20180321
  Serious: Yes (Hospitalization)
  Sender: FDA-Public Use
  Company Number: FR-ABBVIE-17P-056-2114396-00

PATIENT
  Age: 71 Year
  Sex: Male
  Weight: 59.5 kg

DRUGS (3)
  1. DUODOPA [Suspect]
     Active Substance: CARBIDOPA\LEVODOPA
     Indication: PARKINSON^S DISEASE
     Dosage: FROM 7AM TO 12.30AM: 5.5 ML?FROM 12.30 AM TO 8.30 PM: 6.7 ML?REST OF THE DAY: 3.3 ML
     Route: 050
     Dates: start: 20170329
  2. BENSERAZIDE W/LEVODOPA [Concomitant]
     Active Substance: BENSERAZIDE\LEVODOPA
     Indication: PRODUCT USED FOR UNKNOWN INDICATION
  3. CLOZAPINE. [Concomitant]
     Active Substance: CLOZAPINE
     Indication: PRODUCT USED FOR UNKNOWN INDICATION

REACTIONS (4)
  - Knee arthroplasty [Not Recovered/Not Resolved]
  - Medical device site oedema [Not Recovered/Not Resolved]
  - Medical device site joint pain [Not Recovered/Not Resolved]
  - Device occlusion [Recovered/Resolved]

NARRATIVE: CASE EVENT DATE: 20170913
